FAERS Safety Report 4505563-3 (Version None)
Quarter: 2004Q4

REPORT INFORMATION
  Report Type: 
  Country: None (occurrence: None)
  Receive Date: 20041119
  Receipt Date: 20041014
  Transmission Date: 20050328
  Serious: No
  Sender: FDA-Public Use
  Company Number: US-GLAXOSMITHKLINE-A0529954A

PATIENT
  Age: 57 Year
  Sex: Male
  Weight: 79.5 kg

DRUGS (8)
  1. AVODART [Suspect]
     Indication: BENIGN PROSTATIC HYPERPLASIA
     Dosage: .5MG PER DAY
     Route: 048
     Dates: start: 20041012, end: 20041012
  2. ALFUZOSIN [Suspect]
     Indication: BENIGN PROSTATIC HYPERPLASIA
     Route: 048
     Dates: start: 20041012, end: 20041014
  3. ALTACE [Concomitant]
     Dosage: 5MG TWICE PER DAY
     Route: 048
  4. NORVASC [Concomitant]
     Dosage: 10MG TWICE PER DAY
     Route: 048
  5. PRILOSEC [Concomitant]
     Dosage: 20MG TWICE PER DAY
     Route: 048
  6. ZOCOR [Concomitant]
     Dosage: 40MG TWICE PER DAY
     Route: 048
  7. ASPIRIN [Concomitant]
     Dosage: 325MG PER DAY
     Route: 048
  8. ALEVE [Concomitant]
     Dosage: 650MG AS REQUIRED
     Route: 048

REACTIONS (5)
  - DEPRESSION [None]
  - DIARRHOEA [None]
  - GASTROOESOPHAGEAL REFLUX DISEASE [None]
  - ILL-DEFINED DISORDER [None]
  - MUSCULOSKELETAL PAIN [None]
